FAERS Safety Report 16297743 (Version 1)
Quarter: 2019Q2

REPORT INFORMATION
  Report Type: Report from Study
  Country: FI (occurrence: FI)
  Receive Date: 20190510
  Receipt Date: 20190510
  Transmission Date: 20190711
  Serious: Yes (Death, Other)
  Sender: FDA-Public Use
  Company Number: FI-TEVA-2019-FI-1046670

PATIENT
  Age: 57 Year
  Sex: Male

DRUGS (5)
  1. DIAZEPAM. [Interacting]
     Active Substance: DIAZEPAM
     Route: 065
  2. OXYCODONE [Suspect]
     Active Substance: OXYCODONE
     Route: 065
  3. TEMAZEPAM. [Interacting]
     Active Substance: TEMAZEPAM
     Route: 065
  4. CITALOPRAM [Concomitant]
     Active Substance: CITALOPRAM HYDROBROMIDE
  5. CAFFEINE. [Concomitant]
     Active Substance: CAFFEINE

REACTIONS (3)
  - Overdose [Unknown]
  - Drug interaction [Fatal]
  - Toxicity to various agents [Unknown]
